FAERS Safety Report 6578711-1 (Version None)
Quarter: 2010Q1

REPORT INFORMATION
  Report Type: 
  Country: None (occurrence: None)
  Receive Date: 20100202
  Receipt Date: 20100126
  Transmission Date: 20100710
  Serious: No
  Sender: FDA-Public Use
  Company Number: 2009SP043086

PATIENT
  Age: 8 Year

DRUGS (1)
  1. CELESTONE [Suspect]
     Indication: ACUTE RESPIRATORY DISTRESS SYNDROME

REACTIONS (1)
  - NO ADVERSE EVENT [None]
